FAERS Safety Report 24549277 (Version 3)
Quarter: 2024Q4

REPORT INFORMATION
  Report Type: Spontaneous
  Country: CN (occurrence: CN)
  Receive Date: 20241025
  Receipt Date: 20241224
  Transmission Date: 20250114
  Serious: Yes (Other)
  Sender: OTSUKA
  Company Number: CN-OTSUKA-2024_028623

PATIENT
  Age: 19 Year
  Sex: Male
  Weight: 50 kg

DRUGS (8)
  1. ABILIFY MAINTENA [Suspect]
     Active Substance: ARIPIPRAZOLE
     Indication: Psychomotor hyperactivity
     Dosage: 400 MG (0.4 G)
     Route: 030
     Dates: start: 20241017, end: 20241017
  2. ABILIFY MAINTENA [Suspect]
     Active Substance: ARIPIPRAZOLE
     Indication: Irritability
  3. ABILIFY MAINTENA [Suspect]
     Active Substance: ARIPIPRAZOLE
     Indication: Emotional disorder
  4. ABILIFY [Suspect]
     Active Substance: ARIPIPRAZOLE
     Indication: Psychomotor hyperactivity
     Dosage: 5 ML, QD (EVENING)
     Route: 048
  5. ABILIFY [Suspect]
     Active Substance: ARIPIPRAZOLE
     Indication: Irritability
     Dosage: 7 ML, QD (EVENING)
     Route: 048
  6. ABILIFY [Suspect]
     Active Substance: ARIPIPRAZOLE
     Indication: Emotional disorder
     Dosage: 8 ML, QD (EVENING)
     Route: 048
  7. ABILIFY [Suspect]
     Active Substance: ARIPIPRAZOLE
     Dosage: 10 ML, QD (EVENING)
     Route: 048
     Dates: end: 2024
  8. ABILIFY [Suspect]
     Active Substance: ARIPIPRAZOLE
     Dosage: 10 ML, QD (EVENING)
     Route: 048
     Dates: start: 20241016, end: 20241016

REACTIONS (13)
  - Loss of consciousness [Recovering/Resolving]
  - Syncope [Recovered/Resolved]
  - Pallor [Unknown]
  - Head injury [Recovering/Resolving]
  - Swelling [Recovering/Resolving]
  - Middle insomnia [Recovered/Resolved]
  - Mood altered [Recovered/Resolved]
  - Depressed mood [Recovered/Resolved]
  - Depressed mood [Recovering/Resolving]
  - Asthenia [Recovering/Resolving]
  - Headache [Recovering/Resolving]
  - Abdominal discomfort [Recovering/Resolving]
  - Product use in unapproved indication [Unknown]

NARRATIVE: CASE EVENT DATE: 20241017
